FAERS Safety Report 7921420-4 (Version None)
Quarter: 2011Q4

REPORT INFORMATION
  Report Type: 
  Country: None (occurrence: None)
  Receive Date: 20111117
  Receipt Date: 20111109
  Transmission Date: 20120403
  Serious: Yes (Other)
  Sender: FDA-Public Use
  Company Number: US-US-EMD SERONO, INC.-7095138

PATIENT
  Sex: Female

DRUGS (2)
  1. REBIF [Suspect]
     Route: 058
     Dates: start: 20111025
  2. REBIF [Suspect]
     Indication: MULTIPLE SCLEROSIS

REACTIONS (8)
  - INJECTION SITE WARMTH [None]
  - INJECTION SITE INFECTION [None]
  - PAIN [None]
  - INJECTION SITE ERYTHEMA [None]
  - HEADACHE [None]
  - ARTHRALGIA [None]
  - INFLUENZA LIKE ILLNESS [None]
  - BLOOD POTASSIUM DECREASED [None]
